FAERS Safety Report 7610114-0 (Version None)
Quarter: 2011Q3

REPORT INFORMATION
  Report Type: 
  Country: None (occurrence: None)
  Receive Date: 20110715
  Receipt Date: 20110706
  Transmission Date: 20111222
  Serious: No
  Sender: FDA-Public Use
  Company Number: US-BIOGENIDEC-2010BI011262

PATIENT
  Sex: Male

DRUGS (5)
  1. AVONEX [Concomitant]
     Route: 030
     Dates: start: 19980101
  2. AVONEX [Concomitant]
     Route: 030
  3. TYSABRI [Suspect]
     Indication: MULTIPLE SCLEROSIS
     Route: 042
     Dates: start: 20091111, end: 20100324
  4. AVONEX [Concomitant]
     Indication: MULTIPLE SCLEROSIS
     Route: 030
  5. AVONEX [Concomitant]
     Route: 030
     Dates: start: 20091101, end: 20091101

REACTIONS (1)
  - DRUG INEFFECTIVE [None]
